FAERS Safety Report 5936836-5 (Version None)
Quarter: 2008Q4

REPORT INFORMATION
  Report Type: 
  Country: None (occurrence: None)
  Receive Date: 20081029
  Receipt Date: 20081015
  Transmission Date: 20090506
  Serious: Yes (Hospitalization)
  Sender: FDA-Public Use
  Company Number: 16043

PATIENT
  Age: 63 Year
  Sex: Male

DRUGS (5)
  1. NITROGLYCERIN 0.4MG SUBLINGUAL TABLETS (ETHEX CORP.) [Suspect]
     Dosage: 0.4MG PRN SUBLINGUAL
     Route: 060
  2. TOPROL-XL [Concomitant]
  3. PLAVIX [Concomitant]
  4. ASPIRIN [Concomitant]
  5. LIPITOR [Concomitant]

REACTIONS (1)
  - DRUG INEFFECTIVE [None]
